FAERS Safety Report 12772459 (Version 1)
Quarter: 2016Q3

REPORT INFORMATION
  Report Type: Spontaneous
  Country: US (occurrence: US)
  Receive Date: 20160922
  Receipt Date: 20160922
  Transmission Date: 20161109
  Serious: No
  Sender: FDA-Public Use
  Company Number: US-WATSON-2016-12318

PATIENT
  Sex: Female

DRUGS (1)
  1. BUTALBITAL/ASPIRIN/CAFFEINE/CODEINE 50/325/40/30 (WATSON LABORATORIES) [Suspect]
     Active Substance: ASPIRIN\BUTALBITAL\CAFFEINE\CODEINE PHOSPHATE
     Indication: PRODUCT USED FOR UNKNOWN INDICATION
     Dosage: UNKNOWN
     Route: 065

REACTIONS (1)
  - Drug ineffective [Unknown]
